FAERS Safety Report 12286606 (Version 1)
Quarter: 2016Q2

REPORT INFORMATION
  Report Type: Report from Study
  Country: US (occurrence: US)
  Receive Date: 20160420
  Receipt Date: 20160420
  Transmission Date: 20160815
  Serious: Yes (Other)
  Sender: FDA-Public Use
  Company Number: US-JNJFOC-20160412176

PATIENT
  Age: 54 Year
  Sex: Female
  Weight: 79.83 kg

DRUGS (2)
  1. STELARA [Suspect]
     Active Substance: USTEKINUMAB
     Indication: PSORIASIS
     Route: 058
     Dates: start: 20160311
  2. STELARA [Suspect]
     Active Substance: USTEKINUMAB
     Indication: CROHN^S DISEASE
     Route: 058
     Dates: start: 20160311

REACTIONS (7)
  - Fatigue [Recovered/Resolved]
  - Product use issue [Unknown]
  - Drug dose omission [Unknown]
  - Neuropathy peripheral [Recovered/Resolved]
  - Amnesia [Recovered/Resolved]
  - Migraine [Recovered/Resolved]
  - Off label use [Unknown]

NARRATIVE: CASE EVENT DATE: 2016
